FAERS Safety Report 10333438 (Version 1)
Quarter: 2014Q3

REPORT INFORMATION
  Report Type: Spontaneous
  Country: US (occurrence: US)
  Receive Date: 20140722
  Receipt Date: 20140722
  Transmission Date: 20150326
  Serious: No
  Sender: FDA-Public Use
  Company Number: US-SA-2014SA014296

PATIENT
  Age: 67 Year
  Sex: Male
  Weight: 65.8 kg

DRUGS (13)
  1. AMBIEN [Suspect]
     Active Substance: ZOLPIDEM TARTRATE
     Indication: INSOMNIA
     Route: 048
     Dates: start: 20100907, end: 20100909
  2. AMPYRA [Suspect]
     Active Substance: DALFAMPRIDINE
     Indication: MULTIPLE SCLEROSIS
     Route: 048
     Dates: start: 20101201, end: 20101203
  3. LYRICA [Concomitant]
     Active Substance: PREGABALIN
  4. ALEVE [Concomitant]
     Active Substance: NAPROXEN SODIUM
  5. AMBIEN [Suspect]
     Active Substance: ZOLPIDEM TARTRATE
     Indication: INSOMNIA
  6. COPAXONE [Concomitant]
     Active Substance: GLATIRAMER ACETATE
     Indication: MULTIPLE SCLEROSIS
     Dates: start: 2000
  7. ASPIRIN. [Concomitant]
     Active Substance: ASPIRIN
     Indication: PROPHYLAXIS
  8. ZETIA [Concomitant]
     Active Substance: EZETIMIBE
     Indication: DYSPEPSIA
  9. MULTIVITAMINS [Concomitant]
     Active Substance: VITAMINS
  10. AMPYRA [Suspect]
     Active Substance: DALFAMPRIDINE
     Indication: MULTIPLE SCLEROSIS
     Route: 048
     Dates: start: 20100430, end: 20101201
  11. AMPYRA [Suspect]
     Active Substance: DALFAMPRIDINE
     Indication: MULTIPLE SCLEROSIS
     Route: 048
     Dates: start: 20101204
  12. CRESTOR [Concomitant]
     Active Substance: ROSUVASTATIN CALCIUM
     Indication: BLOOD CHOLESTEROL INCREASED
  13. PROTONIX [Concomitant]
     Active Substance: PANTOPRAZOLE SODIUM

REACTIONS (7)
  - Disease progression [Unknown]
  - Myalgia [Not Recovered/Not Resolved]
  - Road traffic accident [Unknown]
  - Pain [Unknown]
  - Gait disturbance [Recovered/Resolved]
  - Malaise [Unknown]
  - Insomnia [Not Recovered/Not Resolved]
